FAERS Safety Report 8758289 (Version 2)
Quarter: 2012Q4

REPORT INFORMATION
  Report Type: 
  Country: FR (occurrence: FR)
  Receive Date: 20120829
  Receipt Date: 20121102
  Transmission Date: 20130627
  Serious: Yes (Life-Threatening, Hospitalization, Other)
  Sender: FDA-Public Use
  Company Number: FR-ASTELLAS-2012EU006240

PATIENT
  Sex: Male
  Weight: 80 kg

DRUGS (10)
  1. PROGRAF [Suspect]
     Indication: RENAL TRANSPLANT
     Dosage: UNK
     Route: 048
     Dates: start: 20031127, end: 20110204
  2. CELLCEPT                           /01275102/ [Suspect]
     Dosage: 1 g, Unknown/D
     Route: 048
  3. CORTANCYL [Concomitant]
     Dosage: 5 mg, Unknown/D
     Route: 048
  4. METFORMIN [Concomitant]
     Dosage: 2550 mg, Unknown/D
     Route: 048
  5. KARDEGIC [Concomitant]
     Dosage: 160 mg, Unknown/D
     Route: 048
  6. ATENOLOL [Concomitant]
     Dosage: 50 mg, Unknown/D
     Route: 048
  7. CO RENITEC [Concomitant]
     Dosage: UNK
     Route: 048
  8. ALLOPURINOL [Concomitant]
     Dosage: 200 mg, Unknown/D
     Route: 048
  9. TAHOR [Concomitant]
     Dosage: 20 mg, Unknown/D
     Route: 048
  10. NOVONORM [Concomitant]
     Dosage: 3 mg, Unknown/D
     Route: 048

REACTIONS (2)
  - Prostate cancer [Not Recovered/Not Resolved]
  - Renal cell carcinoma [Recovered/Resolved]
